FAERS Safety Report 9861669 (Version 1)
Quarter: 2014Q1

REPORT INFORMATION
  Report Type: Spontaneous
  Country: US (occurrence: None)
  Receive Date: 20140130
  Receipt Date: 20140130
  Transmission Date: 20141002
  Serious: Yes (Life-Threatening, Hospitalization, Other)
  Sender: FDA-Public Use
  Company Number: 2147575

PATIENT
  Age: 45 Year
  Sex: Female
  Weight: 62.73 kg

DRUGS (8)
  1. VANCOMYCIN HYDROCHLORIDE [Suspect]
     Indication: INFECTION
     Route: 042
  2. CIPRO [Suspect]
     Indication: INFECTION
     Route: 042
  3. ROCEPHIN [Suspect]
     Indication: INFECTION
     Route: 042
  4. CRANBERRY [Suspect]
  5. LACTOBACILLUS [Suspect]
     Dosage: 2 DF DOSAGE FROM( 1 DAY)
     Route: 048
  6. MULTIVITAMINS [Suspect]
     Route: 048
  7. PROTEIN SUPPLEMENTS [Suspect]
     Route: 048
  8. CRANBERRY [Concomitant]

REACTIONS (7)
  - Muscle atrophy [None]
  - Clostridium difficile infection [None]
  - Cardiac arrest [None]
  - Dysgeusia [None]
  - Dry skin [None]
  - Costochondritis [None]
  - Osteoarthritis [None]
